FAERS Safety Report 18343171 (Version 2)
Quarter: 2020Q4

REPORT INFORMATION
  Report Type: Report from Study
  Country: US (occurrence: US)
  Receive Date: 20201005
  Receipt Date: 20201028
  Transmission Date: 20210113
  Serious: Yes (Other)
  Sender: FDA-Public Use
  Company Number: US-BAYER-2020-210860

PATIENT
  Sex: Female

DRUGS (1)
  1. ASPIRIN. [Suspect]
     Active Substance: ASPIRIN

REACTIONS (2)
  - Post procedural haematoma [None]
  - Maternal exposure during pregnancy [None]
